FAERS Safety Report 8567658-7 (Version None)
Quarter: 2012Q3

REPORT INFORMATION
  Report Type: 
  Country: None (occurrence: None)
  Receive Date: 20120803
  Receipt Date: 20120730
  Transmission Date: 20120928
  Serious: Yes (Other)
  Sender: FDA-Public Use
  Company Number: GB-ROCHE-1096956

PATIENT
  Age: 35 Year
  Sex: Female
  Weight: 65 kg

DRUGS (7)
  1. FLUNISOLIDE [Concomitant]
  2. FLUTICASONE PROPIONATE/SALMETEROL [Concomitant]
  3. CHLORPHENIRAMINE MALEATE [Concomitant]
  4. PREDNISOLONE [Concomitant]
  5. VENTOLIN [Concomitant]
  6. XOLAIR [Suspect]
     Indication: ASTHMA
     Route: 058
     Dates: start: 20120319
  7. ADCAL [Concomitant]

REACTIONS (3)
  - LOCAL REACTION [None]
  - URTICARIA [None]
  - SKIN IRRITATION [None]
